FAERS Safety Report 17117157 (Version 1)
Quarter: 2019Q4

REPORT INFORMATION
  Report Type: Spontaneous
  Country: KW (occurrence: KW)
  Receive Date: 20191205
  Receipt Date: 20191205
  Transmission Date: 20200122
  Serious: Yes (Other)
  Sender: FDA-Public Use
  Company Number: KW-ASTRAZENECA-2019SF73560

PATIENT
  Age: 21817 Day
  Sex: Male

DRUGS (3)
  1. LANTUS [Concomitant]
     Active Substance: INSULIN GLARGINE
  2. NOVORAPID [Concomitant]
     Active Substance: INSULIN ASPART
  3. FORXIGA [Suspect]
     Active Substance: DAPAGLIFLOZIN
     Indication: TYPE 2 DIABETES MELLITUS
     Dosage: 10.0MG UNKNOWN
     Route: 048
     Dates: start: 20171213, end: 20191127

REACTIONS (2)
  - Gastrointestinal polyp [Unknown]
  - Haematuria [Unknown]

NARRATIVE: CASE EVENT DATE: 20191126
